FAERS Safety Report 9744519 (Version 1)
Quarter: 2013Q4

REPORT INFORMATION
  Report Type: Spontaneous
  Country: FR (occurrence: FR)
  Receive Date: 20131210
  Receipt Date: 20131210
  Transmission Date: 20140711
  Serious: Yes (Other)
  Sender: FDA-Public Use
  Company Number: FR-BAXTER-2013BAX048013

PATIENT
  Age: 70 Year
  Sex: Male

DRUGS (11)
  1. ENDOXAN 2000 MG, LYOPHILISAT POUR SOLUTION INJECTABLE [Suspect]
     Indication: MULTIPLE SCLEROSIS
     Route: 042
     Dates: start: 20121107
  2. ENDOXAN 2000 MG, LYOPHILISAT POUR SOLUTION INJECTABLE [Suspect]
     Dosage: 12TH COURSE
     Route: 042
     Dates: start: 20131025, end: 20131025
  3. UROMITEXAN [Concomitant]
     Indication: PRODUCT USED FOR UNKNOWN INDICATION
     Route: 065
     Dates: start: 20121107
  4. UROMITEXAN [Concomitant]
     Dosage: 12TH COURSE
     Route: 065
     Dates: start: 20131025, end: 20131025
  5. ONDANSETRON [Concomitant]
     Indication: PRODUCT USED FOR UNKNOWN INDICATION
     Route: 065
     Dates: start: 20121107
  6. ONDANSETRON [Concomitant]
     Dosage: 12TH COURSE
     Route: 065
     Dates: start: 20131025, end: 20131025
  7. BACLOFENE [Concomitant]
     Indication: DRUG THERAPY
     Dosage: 1/2 TABLET
     Route: 065
  8. CARBAMAZEPINE [Concomitant]
     Indication: DRUG THERAPY
     Dosage: 1 TABLET
     Route: 065
  9. RIVOTRIL [Concomitant]
     Indication: DRUG THERAPY
     Route: 065
  10. RAMIPRIL [Concomitant]
     Indication: DRUG THERAPY
     Route: 065
  11. ESIDREX [Concomitant]
     Indication: DRUG THERAPY
     Dosage: 1/2 TABLET
     Route: 065

REACTIONS (3)
  - Infusion related reaction [Recovered/Resolved]
  - Rash erythematous [Recovered/Resolved]
  - Urticaria [Recovered/Resolved]
